FAERS Safety Report 18659248 (Version 2)
Quarter: 2021Q1

REPORT INFORMATION
  Report Type: Spontaneous
  Country: ME (occurrence: ME)
  Receive Date: 20201224
  Receipt Date: 20210114
  Transmission Date: 20210419
  Serious: Yes (Other)
  Sender: FDA-Public Use
  Company Number: NVSC2020ME331438

PATIENT
  Age: 42 Year
  Sex: Female

DRUGS (1)
  1. PAZOPANIB [Suspect]
     Active Substance: PAZOPANIB
     Indication: SARCOMA
     Dosage: 400 MG, BID
     Route: 065
     Dates: start: 201708

REACTIONS (5)
  - Off label use [Unknown]
  - Haematotoxicity [Unknown]
  - Neutropenia [Unknown]
  - Ear pain [Unknown]
  - Hypoacusis [Unknown]

NARRATIVE: CASE EVENT DATE: 201708
